FAERS Safety Report 8193904-8 (Version None)
Quarter: 2012Q1

REPORT INFORMATION
  Report Type: 
  Country: None (occurrence: None)
  Receive Date: 20120308
  Receipt Date: 20120223
  Transmission Date: 20120608
  Serious: Yes (Hospitalization)
  Sender: FDA-Public Use
  Company Number: US-ELI_LILLY_AND_COMPANY-US201202007630

PATIENT
  Age: 53 Year
  Sex: Male

DRUGS (3)
  1. AXIRON [Suspect]
     Indication: BLOOD TESTOSTERONE DECREASED
     Dosage: 60 MG, QD
     Dates: start: 20110922, end: 20120221
  2. TOPROL-XL [Concomitant]
  3. METFORMIN HCL [Concomitant]

REACTIONS (1)
  - CEREBRAL VENOUS THROMBOSIS [None]
